FAERS Safety Report 7299045-6 (Version None)
Quarter: 2011Q1

REPORT INFORMATION
  Report Type: 
  Country: None (occurrence: None)
  Receive Date: 20110217
  Receipt Date: 20110203
  Transmission Date: 20110831
  Serious: Yes (Hospitalization)
  Sender: FDA-Public Use
  Company Number: VE-CELGENEUS-178-21880-11020579

PATIENT
  Sex: Female
  Weight: 42 kg

DRUGS (3)
  1. REVLIMID [Suspect]
     Indication: LIVER DISORDER
  2. REVLIMID [Suspect]
  3. REVLIMID [Suspect]
     Route: 048
     Dates: start: 20101123, end: 20101210

REACTIONS (1)
  - JAUNDICE [None]
